FAERS Safety Report 6091041-X (Version None)
Quarter: 2009Q1

REPORT INFORMATION
  Report Type: 
  Country: None (occurrence: None)
  Receive Date: 20090219
  Receipt Date: 20090219
  Transmission Date: 20090719
  Serious: Yes (Disabling)
  Sender: FDA-Public Use
  Company Number: GAM-019-09-AU

PATIENT
  Age: 79 Year
  Sex: Female

DRUGS (1)
  1. OCTAGAM [Suspect]
     Indication: SECONDARY IMMUNODEFICIENCY
     Dosage: 30 G; I.V.
     Route: 042
     Dates: start: 20080106, end: 20080930

REACTIONS (8)
  - ARTHRALGIA [None]
  - CHILLS [None]
  - GAIT DISTURBANCE [None]
  - HEADACHE [None]
  - MYALGIA [None]
  - NYSTAGMUS [None]
  - PAIN OF SKIN [None]
  - SINUS HEADACHE [None]
